FAERS Safety Report 8812382 (Version 4)
Quarter: 2013Q2

REPORT INFORMATION
  Report Type: Report from Study
  Country: JP (occurrence: JP)
  Receive Date: 20120927
  Receipt Date: 20130502
  Transmission Date: 20140414
  Serious: Yes (Other)
  Sender: FDA-Public Use
  Company Number: JP-JNJFOC-20120910717

PATIENT
  Age: 38 Year
  Sex: Female
  Weight: 50 kg

DRUGS (12)
  1. STELARA [Suspect]
     Indication: PSORIASIS
     Route: 058
     Dates: start: 20121127
  2. STELARA [Suspect]
     Indication: PSORIASIS
     Route: 058
     Dates: start: 20120703
  3. STELARA [Suspect]
     Indication: PSORIASIS
     Route: 058
     Dates: start: 20120403
  4. STELARA [Suspect]
     Indication: PSORIASIS
     Route: 058
     Dates: start: 20120110
  5. STELARA [Suspect]
     Indication: PSORIASIS
     Route: 058
     Dates: start: 20110823
  6. STELARA [Suspect]
     Indication: PSORIASIS
     Route: 058
     Dates: start: 20110920
  7. ISONIAZID [Concomitant]
     Indication: PROPHYLAXIS
     Route: 048
     Dates: end: 20120402
  8. PYRIDOXAL PHOSPHATE [Concomitant]
     Indication: PROPHYLAXIS
     Route: 048
     Dates: end: 20120402
  9. VITAMIN A [Concomitant]
     Indication: PSORIASIS
     Route: 061
     Dates: end: 20120110
  10. DEXAMETHASONE [Concomitant]
     Indication: PSORIASIS
     Route: 061
     Dates: end: 20111013
  11. BONALFA [Concomitant]
     Indication: PSORIASIS
     Route: 061
     Dates: end: 20120110
  12. PREDNISOLONE [Concomitant]
     Indication: PSORIASIS
     Route: 061
     Dates: end: 20120110

REACTIONS (1)
  - Gastroenteritis [Recovered/Resolved]
